FAERS Safety Report 18494406 (Version 9)
Quarter: 2025Q1

REPORT INFORMATION
  Report Type: Report from Study
  Country: US (occurrence: US)
  Receive Date: 20201112
  Receipt Date: 20250328
  Transmission Date: 20250408
  Serious: Yes (Hospitalization, Other)
  Sender: TAKEDA
  Company Number: US-TAKEDA-2020TUS048299

PATIENT
  Age: 49 Year
  Sex: Male

DRUGS (5)
  1. ADVATE [Suspect]
     Active Substance: ANTIHEMOPHILIC FACTOR, HUMAN RECOMBINANT
     Indication: Product used for unknown indication
  2. ADVATE [Suspect]
     Active Substance: ANTIHEMOPHILIC FACTOR, HUMAN RECOMBINANT
  3. ADVATE [Suspect]
     Active Substance: ANTIHEMOPHILIC FACTOR, HUMAN RECOMBINANT
     Dosage: 4000 INTERNATIONAL UNIT, QD
  4. ADVATE [Suspect]
     Active Substance: ANTIHEMOPHILIC FACTOR, HUMAN RECOMBINANT
  5. ADVATE [Suspect]
     Active Substance: ANTIHEMOPHILIC FACTOR, HUMAN RECOMBINANT

REACTIONS (12)
  - Rectal haemorrhage [Recovering/Resolving]
  - Gastrointestinal ulcer haemorrhage [Unknown]
  - Gastrointestinal haemorrhage [Unknown]
  - Rectal ulcer [Recovering/Resolving]
  - Haemarthrosis [Recovered/Resolved]
  - Post procedural haemorrhage [Unknown]
  - COVID-19 [Unknown]
  - Ulcer [Not Recovered/Not Resolved]
  - Muscle strain [Unknown]
  - Joint injury [Unknown]
  - Product use issue [Unknown]
  - Product availability issue [Unknown]

NARRATIVE: CASE EVENT DATE: 20201031
